FAERS Safety Report 9062604 (Version 1)
Quarter: 2013Q1

REPORT INFORMATION
  Report Type: Report from Study
  Country: US (occurrence: US)
  Receive Date: 20130128
  Receipt Date: 20130128
  Transmission Date: 20140127
  Serious: Yes (Other)
  Sender: FDA-Public Use
  Company Number: US-ABBOTT-12P-163-0917216-00

PATIENT
  Sex: Female

DRUGS (2)
  1. HUMIRA 40 MG/0.8 ML PEN [Suspect]
     Indication: PSORIATIC ARTHROPATHY
     Route: 058
     Dates: start: 200904, end: 201110
  2. HUMIRA 40 MG/0.8 ML PEN [Suspect]
     Dates: start: 201203

REACTIONS (5)
  - Rotator cuff repair [Unknown]
  - Anaemia [Unknown]
  - Influenza [Unknown]
  - Nasopharyngitis [Unknown]
  - Gastroenteritis viral [Unknown]
